FAERS Safety Report 9471164 (Version 1)
Quarter: 2013Q3

REPORT INFORMATION
  Report Type: Report from Study
  Country: US (occurrence: US)
  Receive Date: 20130822
  Receipt Date: 20130822
  Transmission Date: 20140515
  Serious: Yes (Hospitalization)
  Sender: FDA-Public Use
  Company Number: US-PFIZER INC-2013239198

PATIENT
  Age: 72 Year
  Sex: Male

DRUGS (11)
  1. VISTARIL [Suspect]
     Dosage: UNK
     Dates: start: 20110819, end: 20130317
  2. BLINDED THERAPY [Suspect]
     Dosage: UNK
     Dates: start: 20130219, end: 20130514
  3. NORVASC [Concomitant]
  4. DIOVAN [Concomitant]
  5. EXFORGE [Concomitant]
  6. AMANTADINE [Concomitant]
  7. NUEDEXTA [Concomitant]
  8. EXELON PATCH [Concomitant]
     Dosage: FORMULATION: PATCH
  9. ASPIRIN [Concomitant]
  10. NAMENDA [Concomitant]
  11. ATENOLOL [Concomitant]

REACTIONS (1)
  - Fall [Recovered/Resolved]
